FAERS Safety Report 25155172 (Version 1)
Quarter: 2025Q2

REPORT INFORMATION
  Report Type: Spontaneous
  Country: BR (occurrence: BR)
  Receive Date: 20250403
  Receipt Date: 20250403
  Transmission Date: 20250716
  Serious: Yes (Death, Other)
  Sender: ANI
  Company Number: BR-ANIPHARMA-022260

PATIENT
  Age: 28 Year
  Sex: Female

DRUGS (1)
  1. FLUVOXAMINE MALEATE [Suspect]
     Active Substance: FLUVOXAMINE MALEATE
     Indication: Product used for unknown indication

REACTIONS (3)
  - Depression [Fatal]
  - Completed suicide [Fatal]
  - Therapy interrupted [Fatal]
